FAERS Safety Report 23817080 (Version 1)
Quarter: 2024Q2

REPORT INFORMATION
  Report Type: Other
  Country: US (occurrence: US)
  Receive Date: 20240504
  Receipt Date: 20240504
  Transmission Date: 20240716
  Serious: Yes (Other)
  Sender: FDA-Public Use
  Company Number: US-Everest Life Sciences LLC-2156484

PATIENT
  Age: 39 Year
  Sex: Male

DRUGS (1)
  1. DAPSONE [Suspect]
     Active Substance: DAPSONE
     Indication: Pneumocystis jirovecii pneumonia
     Route: 065

REACTIONS (7)
  - Myocardial injury [Recovered/Resolved]
  - Product use in unapproved indication [Unknown]
  - Dyspnoea [Recovered/Resolved]
  - Angina pectoris [Recovered/Resolved]
  - Anaemia [Recovered/Resolved]
  - Methaemoglobinaemia [Recovered/Resolved]
  - Pulmonary congestion [Recovered/Resolved]
